FAERS Safety Report 14513894 (Version 1)
Quarter: 2018Q1

REPORT INFORMATION
  Report Type: Spontaneous
  Country: IT (occurrence: IT)
  Receive Date: 20180209
  Receipt Date: 20180209
  Transmission Date: 20180509
  Serious: Yes (Death, Life-Threatening, Hospitalization)
  Sender: FDA-Public Use
  Company Number: IT-MYLANLABS-95P-083-0148866-00

PATIENT
  Age: 40 Year
  Sex: Female

DRUGS (6)
  1. FENOTEROL [Concomitant]
     Active Substance: FENOTEROL
     Indication: PRODUCT USED FOR UNKNOWN INDICATION
     Dosage: PRN
  2. IBUPROFEN. [Suspect]
     Active Substance: IBUPROFEN
     Indication: TOOTHACHE
     Dosage: 400 MG, ONCE
     Route: 048
  3. BETAMETHASONE. [Concomitant]
     Active Substance: BETAMETHASONE
     Dosage: 4 MG, ONCE
     Route: 030
  4. EPINEPHRINE. [Concomitant]
     Active Substance: EPINEPHRINE
     Indication: PRODUCT USED FOR UNKNOWN INDICATION
  5. BETAMETHASONE. [Concomitant]
     Active Substance: BETAMETHASONE
     Indication: PRODUCT USED FOR UNKNOWN INDICATION
     Dosage: 1 MG, ONCE
     Route: 048
  6. BEROTEC [Suspect]
     Active Substance: FENOTEROL HYDROBROMIDE
     Indication: ASTHMA
     Route: 065

REACTIONS (2)
  - Condition aggravated [Fatal]
  - Asthma [Fatal]
